FAERS Safety Report 6007868-6 (Version None)
Quarter: 2008Q4

REPORT INFORMATION
  Report Type: 
  Country: None (occurrence: None)
  Receive Date: 20081217
  Receipt Date: 20080707
  Transmission Date: 20090506
  Serious: No
  Sender: FDA-Public Use
  Company Number: US-ASTRAZENECA-2008UW13593

PATIENT
  Age: 77 Year
  Sex: Female
  Weight: 68.5 kg

DRUGS (7)
  1. CRESTOR [Suspect]
     Indication: HYPERCHOLESTEROLAEMIA
     Route: 048
     Dates: start: 20080601
  2. TOPROL-XL [Concomitant]
  3. COZAAR [Concomitant]
  4. ALLOPURINOL [Concomitant]
  5. LASIX [Concomitant]
  6. RANITIDINE [Concomitant]
  7. REQUIP [Concomitant]

REACTIONS (3)
  - FEELING JITTERY [None]
  - NERVOUSNESS [None]
  - PRURITUS GENERALISED [None]
